FAERS Safety Report 18628829 (Version 2)
Quarter: 2021Q1

REPORT INFORMATION
  Report Type: Report from Study
  Country: BR (occurrence: BR)
  Receive Date: 20201217
  Receipt Date: 20210318
  Transmission Date: 20210419
  Serious: Yes (Hospitalization, Disabling)
  Sender: FDA-Public Use
  Company Number: NVSC2020BR334533

PATIENT
  Sex: Male

DRUGS (1)
  1. COSENTYX [Suspect]
     Active Substance: SECUKINUMAB
     Indication: PRODUCT USED FOR UNKNOWN INDICATION
     Dosage: UNK
     Route: 065
     Dates: end: 202012

REACTIONS (5)
  - Hypokinesia [Unknown]
  - Therapy non-responder [Unknown]
  - Therapeutic product effect delayed [Unknown]
  - Intestinal haemorrhage [Recovered/Resolved]
  - Malaise [Unknown]
